FAERS Safety Report 16183220 (Version 3)
Quarter: 2019Q2

REPORT INFORMATION
  Report Type: Report from Study
  Country: US (occurrence: US)
  Receive Date: 20190411
  Receipt Date: 20190607
  Transmission Date: 20190711
  Serious: Yes (Other)
  Sender: FDA-Public Use
  Company Number: PHEH2019US015142

PATIENT
  Sex: Female

DRUGS (2)
  1. COSENTYX [Suspect]
     Active Substance: SECUKINUMAB
     Dosage: 300 MG, QMO
     Route: 058
     Dates: start: 201903
  2. COSENTYX [Suspect]
     Active Substance: SECUKINUMAB
     Indication: PSORIASIS
     Dosage: UNK
     Route: 058
     Dates: start: 201901

REACTIONS (15)
  - Chills [Unknown]
  - Thirst [Unknown]
  - Blood triglycerides increased [Unknown]
  - Cardiac disorder [Unknown]
  - Diarrhoea [Unknown]
  - Arrhythmia [Unknown]
  - Fatigue [Unknown]
  - Decreased appetite [Unknown]
  - Skin ulcer [Unknown]
  - Dry mouth [Unknown]
  - Feeling abnormal [Unknown]
  - Vomiting [Unknown]
  - Malaise [Unknown]
  - Herpes zoster [Unknown]
  - Pruritus [Unknown]
